FAERS Safety Report 7788770-6 (Version None)
Quarter: 2011Q3

REPORT INFORMATION
  Report Type: 
  Country: None (occurrence: None)
  Receive Date: 20110930
  Receipt Date: 20110920
  Transmission Date: 20111222
  Serious: Yes (Other)
  Sender: FDA-Public Use
  Company Number: US-US-EMD SERONO, INC.-7084538

PATIENT
  Sex: Female

DRUGS (2)
  1. REBIF [Suspect]
     Indication: PRODUCT USED FOR UNKNOWN INDICATION
     Route: 058
     Dates: start: 20110815
  2. TYLENOL-500 [Concomitant]
     Indication: PREMEDICATION
     Dates: start: 20110101

REACTIONS (4)
  - HAEMATOCHEZIA [None]
  - ABDOMINAL DISTENSION [None]
  - NAUSEA [None]
  - ARTHRALGIA [None]
